FAERS Safety Report 4466859-7 (Version None)
Quarter: 2004Q4

REPORT INFORMATION
  Report Type: 
  Country: None (occurrence: None)
  Receive Date: 20041001
  Receipt Date: 20040923
  Transmission Date: 20050328
  Serious: Yes (Hospitalization, Other)
  Sender: FDA-Public Use
  Company Number: HQWYE363706APR04

PATIENT
  Age: 68 Year
  Sex: Male
  Weight: 89 kg

DRUGS (2)
  1. MYLOTARG [Suspect]
     Indication: ACUTE MYELOID LEUKAEMIA
     Dosage: SEE IMAGE
     Route: 042
     Dates: start: 20040316, end: 20040316
  2. MYLOTARG [Suspect]
     Indication: ACUTE MYELOID LEUKAEMIA
     Dosage: SEE IMAGE
     Route: 042
     Dates: start: 20040323, end: 20040323

REACTIONS (4)
  - BODY TEMPERATURE INCREASED [None]
  - NEUTROPENIC INFECTION [None]
  - PLATELET COUNT ABNORMAL [None]
  - STAPHYLOCOCCAL INFECTION [None]
